FAERS Safety Report 24056124 (Version 1)
Quarter: 2024Q3

REPORT INFORMATION
  Report Type: Spontaneous
  Country: JP (occurrence: JP)
  Receive Date: 20240705
  Receipt Date: 20240705
  Transmission Date: 20241017
  Serious: Yes (Other)
  Sender: TEVA
  Company Number: JP-TEVA-VS-3177849

PATIENT
  Age: 8 Decade

DRUGS (3)
  1. AZILECT [Suspect]
     Active Substance: RASAGILINE MESYLATE
     Indication: Parkinson^s disease
     Route: 048
     Dates: end: 20240201
  2. ISTRADEFYLLINE [Concomitant]
     Active Substance: ISTRADEFYLLINE
  3. CARBIDOPA\LEVODOPA [Concomitant]
     Active Substance: CARBIDOPA\LEVODOPA

REACTIONS (4)
  - Parkinson^s disease [Unknown]
  - Hallucination [Not Recovered/Not Resolved]
  - Dementia [Unknown]
  - Hallucination, visual [Not Recovered/Not Resolved]
